FAERS Safety Report 6978884-2 (Version None)
Quarter: 2010Q3

REPORT INFORMATION
  Report Type: 
  Country: None (occurrence: None)
  Receive Date: 20100908
  Receipt Date: 20100827
  Transmission Date: 20110219
  Serious: Yes (Hospitalization)
  Sender: FDA-Public Use
  Company Number: 2010US001275

PATIENT
  Age: 79 Year
  Sex: Male
  Weight: 100 kg

DRUGS (3)
  1. AMEVIVE [Suspect]
     Indication: PSORIASIS
     Dosage: 0.5 MG, WEEKLY; INTRAMUSCULAR
     Route: 030
     Dates: start: 20070601, end: 20071121
  2. SIMVASTATIN [Concomitant]
  3. ASPIRIN [Concomitant]

REACTIONS (3)
  - ANGINA PECTORIS [None]
  - CORONARY ARTERIAL STENT INSERTION [None]
  - CORONARY ARTERY DISEASE [None]
